FAERS Safety Report 13491999 (Version 1)
Quarter: 2017Q2

REPORT INFORMATION
  Report Type: Spontaneous
  Country: US (occurrence: US)
  Receive Date: 20170427
  Receipt Date: 20170427
  Transmission Date: 20170830
  Serious: Yes (Hospitalization)
  Sender: FDA-Public Use
  Company Number: PHHY2017US058851

PATIENT
  Age: 4 Year
  Sex: Male

DRUGS (6)
  1. RIFAMPICIN [Suspect]
     Active Substance: RIFAMPIN
     Indication: PRURITUS
     Route: 065
  2. RAVICTI [Interacting]
     Active Substance: GLYCEROL PHENYLBUTYRATE
     Indication: PROGRESSIVE FAMILIAL INTRAHEPATIC CHOLESTASIS
     Dosage: 7.1 G, QD 8.1 G/M2 TID
     Route: 065
  3. RAVICTI [Interacting]
     Active Substance: GLYCEROL PHENYLBUTYRATE
     Dosage: 8.7 UNK, UNK 11.4 G/M2 QD
     Route: 065
  4. BUPHENYL [Interacting]
     Active Substance: SODIUM PHENYLBUTYRATE
     Indication: PROGRESSIVE FAMILIAL INTRAHEPATIC CHOLESTASIS
     Dosage: 400 MG/KG, QD
     Route: 065
  5. BUPHENYL [Interacting]
     Active Substance: SODIUM PHENYLBUTYRATE
     Dosage: 500 MG/KG, QD
     Route: 065
  6. URSODEOXYCHOLIC ACID [Concomitant]
     Active Substance: URSODIOL
     Indication: PRURITUS
     Route: 065

REACTIONS (2)
  - Drug interaction [Unknown]
  - Drug-induced liver injury [Recovered/Resolved]
